FAERS Safety Report 23762167 (Version 2)
Quarter: 2024Q3

REPORT INFORMATION
  Report Type: Spontaneous
  Country: US (occurrence: US)
  Receive Date: 20240419
  Receipt Date: 20240704
  Transmission Date: 20241017
  Serious: No
  Sender: LUPIN
  Company Number: US-LUPIN PHARMACEUTICALS INC.-2024-03162

PATIENT

DRUGS (1)
  1. DESVENLAFAXINE SUCCINATE [Suspect]
     Active Substance: DESVENLAFAXINE SUCCINATE
     Indication: Depression
     Dosage: 1 DOSAGE FORM, QD
     Route: 048

REACTIONS (5)
  - Depressed mood [Unknown]
  - Feeling abnormal [Unknown]
  - Malaise [Unknown]
  - Crying [Unknown]
  - Drug ineffective [Unknown]
